FAERS Safety Report 14765577 (Version 4)
Quarter: 2018Q2

REPORT INFORMATION
  Report Type: Spontaneous
  Country: BR (occurrence: BR)
  Receive Date: 20180416
  Receipt Date: 20180502
  Transmission Date: 20180711
  Serious: No
  Sender: FDA-Public Use
  Company Number: BR-PFIZER INC-2018148002

PATIENT
  Sex: Female

DRUGS (1)
  1. ADVIL [Suspect]
     Active Substance: IBUPROFEN
     Dosage: 1 DF, UNK
     Route: 048
     Dates: start: 20180408

REACTIONS (8)
  - Oesophageal disorder [Unknown]
  - Asthenia [Unknown]
  - Product solubility abnormal [Unknown]
  - Product physical issue [Unknown]
  - Throat irritation [Unknown]
  - Headache [Unknown]
  - Oesophageal pain [Recovering/Resolving]
  - Feeding disorder [Unknown]

NARRATIVE: CASE EVENT DATE: 20180408
